FAERS Safety Report 24889464 (Version 2)
Quarter: 2025Q2

REPORT INFORMATION
  Report Type: Spontaneous
  Country: IN (occurrence: IN)
  Receive Date: 20250127
  Receipt Date: 20250609
  Transmission Date: 20250717
  Serious: Yes (Other)
  Sender: PFIZER
  Company Number: IN-PFIZER INC-PV202400109074

PATIENT
  Age: 49 Year
  Sex: Male

DRUGS (2)
  1. LORLATINIB [Suspect]
     Active Substance: LORLATINIB
     Indication: Lung adenocarcinoma
     Dosage: 100 MG, 1X/DAY (OD)
     Route: 048
     Dates: start: 20240709
  2. LORLATINIB [Suspect]
     Active Substance: LORLATINIB
     Indication: Metastases to central nervous system
     Dosage: 100 MG, 1X/DAY X 2 MONTHS (WITH PAP) AND CONTINUE
     Route: 048

REACTIONS (8)
  - Cerebral haemorrhage [Recovered/Resolved]
  - Illness anxiety disorder [Recovered/Resolved]
  - Weight increased [Recovered/Resolved]
  - Hypertriglyceridaemia [Recovered/Resolved]
  - Oedema peripheral [Recovered/Resolved]
  - Blood cholesterol increased [Recovered/Resolved]
  - AST/ALT ratio abnormal [Recovered/Resolved]
  - Iron deficiency anaemia [Unknown]

NARRATIVE: CASE EVENT DATE: 20240805
